FAERS Safety Report 24928479 (Version 6)
Quarter: 2025Q4

REPORT INFORMATION
  Report Type: Report from Study
  Country: RU (occurrence: RU)
  Receive Date: 20250205
  Receipt Date: 20251226
  Transmission Date: 20260118
  Serious: Yes (Other)
  Sender: NOVARTIS
  Company Number: RU-002147023-NVSC2024RU244002

PATIENT
  Age: 12 Year
  Sex: Female

DRUGS (1)
  1. COSENTYX [Suspect]
     Active Substance: SECUKINUMAB
     Indication: Psoriasis
     Dosage: 150 MG
     Route: 058
     Dates: start: 20240416

REACTIONS (6)
  - Pyoderma [Recovered/Resolved]
  - Dermatitis allergic [Recovered/Resolved]
  - Impetigo [Recovered/Resolved]
  - Eczema [Recovered/Resolved]
  - Pyoderma [Recovered/Resolved]
  - Dermatitis atopic [Not Recovered/Not Resolved]

NARRATIVE: CASE EVENT DATE: 20241118
